FAERS Safety Report 11545155 (Version 2)
Quarter: 2017Q3

REPORT INFORMATION
  Report Type: Report from Study
  Country: AR (occurrence: AR)
  Receive Date: 20150924
  Receipt Date: 20170928
  Transmission Date: 20171127
  Serious: Yes (Hospitalization, Other)
  Sender: FDA-Public Use
  Company Number: AR-BRISTOL-MYERS SQUIBB COMPANY-BMS-2015-062081

PATIENT
  Age: 41 Year
  Sex: Female

DRUGS (1)
  1. ABATACEPT [Suspect]
     Active Substance: ABATACEPT
     Indication: RHEUMATOID ARTHRITIS
     Dosage: UNK, QMO
     Route: 042
     Dates: start: 20130731, end: 20170918

REACTIONS (4)
  - Urinary tract infection [Recovering/Resolving]
  - Accident [Unknown]
  - Surgery [Unknown]
  - Multiple fractures [Recovering/Resolving]

NARRATIVE: CASE EVENT DATE: 20150903
